FAERS Safety Report 18563936 (Version 1)
Quarter: 2020Q4

REPORT INFORMATION
  Report Type: Spontaneous
  Country: US (occurrence: US)
  Receive Date: 20201006
  Receipt Date: 20201006
  Transmission Date: 20210114
  Serious: Yes (Death)
  Sender: FDA-Public Use
  Company Number: None

PATIENT
  Age: 7 Decade
  Sex: Male

DRUGS (2)
  1. UMIFENOVIR. [Suspect]
     Active Substance: UMIFENOVIR
     Indication: COVID-19
     Dates: start: 2020
  2. METHYLPREDNISOLONE. [Suspect]
     Active Substance: METHYLPREDNISOLONE
     Indication: COVID-19
     Dates: start: 2020

REACTIONS (7)
  - Sudden death [None]
  - Respiratory acidosis [None]
  - Hypoxia [None]
  - Pneumothorax [None]
  - Respiratory failure [None]
  - Disseminated intravascular coagulation [None]
  - Product use in unapproved indication [None]
